FAERS Safety Report 5495198-0 (Version None)
Quarter: 2007Q4

REPORT INFORMATION
  Report Type: 
  Country: None (occurrence: None)
  Receive Date: 20071024
  Receipt Date: 20070712
  Transmission Date: 20080405
  Serious: No
  Sender: FDA-Public Use
  Company Number: US-AMGEN-US230181

PATIENT
  Sex: Male
  Weight: 90.6 kg

DRUGS (4)
  1. VECTIBIX [Suspect]
     Indication: COLORECTAL CANCER
     Route: 042
     Dates: start: 20070517
  2. VECTIBIX [Suspect]
     Route: 042
     Dates: start: 20070607
  3. AVASTIN [Concomitant]
     Route: 065
     Dates: start: 20070517
  4. IRINOTECAN HCL [Concomitant]
     Dates: start: 20070517

REACTIONS (1)
  - STOMATITIS [None]
